FAERS Safety Report 14205510 (Version 4)
Quarter: 2019Q2

REPORT INFORMATION
  Report Type: Report from Study
  Country: US (occurrence: US)
  Receive Date: 20171120
  Receipt Date: 20190418
  Transmission Date: 20190711
  Serious: Yes (Hospitalization, Other)
  Sender: FDA-Public Use
  Company Number: PHEH2017US036937

PATIENT
  Sex: Male

DRUGS (1)
  1. MYFORTIC [Suspect]
     Active Substance: MYCOPHENOLATE SODIUM
     Indication: PRODUCT USED FOR UNKNOWN INDICATION
     Dosage: UNK
     Route: 065

REACTIONS (8)
  - Sepsis [Unknown]
  - Localised infection [Unknown]
  - Staphylococcal infection [Unknown]
  - Peripheral artery occlusion [Unknown]
  - Wound [Unknown]
  - Multiple fractures [Unknown]
  - Ulcer [Unknown]
  - Mobility decreased [Unknown]
